FAERS Safety Report 14599346 (Version 1)
Quarter: 2018Q1

REPORT INFORMATION
  Report Type: Spontaneous
  Country: US (occurrence: US)
  Receive Date: 20180305
  Receipt Date: 20180305
  Transmission Date: 20180509
  Serious: No
  Sender: FDA-Public Use
  Company Number: US-009507513-1803USA001595

PATIENT

DRUGS (1)
  1. ASMANEX [Suspect]
     Active Substance: MOMETASONE FUROATE
     Dosage: UNK
     Route: 048
     Dates: start: 2018

REACTIONS (4)
  - No adverse event [Unknown]
  - Ageusia [Unknown]
  - Anosmia [Unknown]
  - Accidental overdose [Unknown]

NARRATIVE: CASE EVENT DATE: 2018
